FAERS Safety Report 10185976 (Version 1)
Quarter: 2014Q2

REPORT INFORMATION
  Report Type: Spontaneous
  Country: US (occurrence: None)
  Receive Date: 20140520
  Receipt Date: 20140520
  Transmission Date: 20141212
  Serious: Yes (Hospitalization)
  Sender: FDA-Public Use
  Company Number: None

PATIENT
  Age: 60 Year
  Sex: Male
  Weight: 90.9 kg

DRUGS (2)
  1. VENLAFAXINE [Suspect]
     Indication: DEPRESSION
     Route: 048
     Dates: start: 20140320, end: 20140427
  2. DIVALPROEX [Suspect]
     Indication: CONVULSION
     Route: 048
     Dates: start: 20140213, end: 20140427

REACTIONS (2)
  - Hepatitis [None]
  - Drug-induced liver injury [None]
